FAERS Safety Report 8040204-2 (Version None)
Quarter: 2012Q1

REPORT INFORMATION
  Report Type: 
  Country: None (occurrence: None)
  Receive Date: 20120111
  Receipt Date: 20111227
  Transmission Date: 20120608
  Serious: No
  Sender: FDA-Public Use
  Company Number: US-AMGEN-USASP2011069109

PATIENT
  Sex: Female

DRUGS (1)
  1. ENBREL [Suspect]
     Indication: RHEUMATOID ARTHRITIS
     Dosage: 25 MG, 2 TIMES/WK
     Dates: start: 20030101

REACTIONS (7)
  - NASAL CONGESTION [None]
  - LACRIMATION INCREASED [None]
  - UPPER-AIRWAY COUGH SYNDROME [None]
  - RHINORRHOEA [None]
  - EYE PRURITUS [None]
  - SEASONAL ALLERGY [None]
  - SNEEZING [None]
